FAERS Safety Report 6060128-X (Version None)
Quarter: 2009Q1

REPORT INFORMATION
  Report Type: 
  Country: None (occurrence: None)
  Receive Date: 20090128
  Receipt Date: 20090113
  Transmission Date: 20090719
  Serious: Yes (Life-Threatening)
  Sender: FDA-Public Use
  Company Number: 2009S1000617

PATIENT
  Age: 65 Year
  Sex: Female
  Weight: 68.1 kg

DRUGS (4)
  1. ALENDRONIC ACID (ALENDRONIC ACID) (70 MG) [Suspect]
     Indication: OSTEOPOROSIS
     Dosage: 70 MG; ; ORAL
     Route: 048
     Dates: start: 20020101, end: 20080101
  2. ADCAL-D3 [Concomitant]
  3. ATENOLOL [Concomitant]
  4. SIMVASTATIN [Concomitant]

REACTIONS (3)
  - ATRIAL FIBRILLATION [None]
  - BLOOD CHOLESTEROL INCREASED [None]
  - BLOOD PRESSURE INCREASED [None]
